FAERS Safety Report 12649013 (Version 1)
Quarter: 2016Q3

REPORT INFORMATION
  Report Type: Spontaneous
  Country: CN (occurrence: CN)
  Receive Date: 20160812
  Receipt Date: 20160812
  Transmission Date: 20161109
  Serious: Yes (Hospitalization)
  Sender: FDA-Public Use
  Company Number: CN-ASTRAZENECA-2016SE86521

PATIENT
  Age: 26663 Day
  Sex: Female

DRUGS (3)
  1. LEVOFLOXACIN HYDROCHLORIDE AND SODIUM CHLORIDE [Suspect]
     Active Substance: LEVOFLOXACIN HYDROCHLORIDE
     Indication: LUNG INFECTION
     Route: 041
     Dates: start: 20160114, end: 20160128
  2. SULPERAZON [Suspect]
     Active Substance: CEFOPERAZONE SODIUM\SULBACTAM SODIUM
     Indication: LUNG INFECTION
     Route: 041
     Dates: start: 20160115, end: 20160122
  3. MEPEM [Suspect]
     Active Substance: MEROPENEM
     Indication: LUNG INFECTION
     Route: 041
     Dates: start: 20160108, end: 20160114

REACTIONS (2)
  - Diarrhoea [Recovered/Resolved]
  - Dysbacteriosis [Unknown]

NARRATIVE: CASE EVENT DATE: 20160128
